FAERS Safety Report 5250043-3 (Version None)
Quarter: 2007Q1

REPORT INFORMATION
  Report Type: 
  Country: None (occurrence: None)
  Receive Date: 20070228
  Receipt Date: 20060130
  Transmission Date: 20070707
  Serious: No
  Sender: FDA-Public Use
  Company Number: US-GLAXOSMITHKLINE-A0591492A

PATIENT
  Age: 39 Year
  Sex: Male

DRUGS (2)
  1. LAMICTAL [Suspect]
     Indication: CYCLOTHYMIC DISORDER
     Dosage: 150MG TWICE PER DAY
     Route: 048
     Dates: start: 20030101
  2. TRILEPTAL [Concomitant]

REACTIONS (1)
  - NEURALGIA [None]
